FAERS Safety Report 5715700-0 (Version None)
Quarter: 2008Q2

REPORT INFORMATION
  Report Type: 
  Country: None (occurrence: None)
  Receive Date: 20080424
  Receipt Date: 20080415
  Transmission Date: 20081010
  Serious: Yes (Death, Hospitalization)
  Sender: FDA-Public Use
  Company Number: HQWYE385603AUG07

PATIENT
  Sex: Male

DRUGS (21)
  1. PANTOPRAZOLE SODIUM [Suspect]
     Route: 048
  2. COMTAN [Suspect]
     Indication: PARKINSON'S DISEASE
     Route: 048
     Dates: start: 20060101
  3. CEBUTID [Suspect]
     Route: 048
     Dates: start: 20070606, end: 20070717
  4. PAROXETINE HCL [Suspect]
     Route: 048
     Dates: start: 20060101, end: 20070701
  5. SINEMET [Suspect]
     Indication: PARKINSON'S DISEASE
     Dosage: ^DF^ UNKNOWN FREQUENCY
     Route: 048
     Dates: start: 20060101
  6. REQUIP [Suspect]
     Indication: PARKINSON'S DISEASE
     Route: 048
     Dates: start: 20060101
  7. MODOPAR [Suspect]
     Indication: PARKINSON'S DISEASE
     Dosage: ^DF^ UNKNOWN FREQUENCY
     Route: 048
  8. TAMSULOSIN HCL [Suspect]
     Route: 048
  9. IMOVANE [Suspect]
     Route: 048
     Dates: start: 20070606, end: 20070717
  10. PERMIXON [Suspect]
     Route: 048
     Dates: start: 20060101
  11. XANAX [Suspect]
     Route: 048
     Dates: start: 20070717, end: 20070717
  12. PLAVIX [Concomitant]
     Dosage: ^DF^ UNKNOWN FREQUENCY
     Route: 065
     Dates: start: 19970101, end: 20070606
  13. ULTIVA [Suspect]
     Dosage: ^DF^
     Route: 042
     Dates: start: 20070718, end: 20070718
  14. PROPOFOL [Suspect]
     Dosage: ^DF^
     Route: 042
     Dates: start: 20070718, end: 20070718
  15. ATROPINE [Suspect]
     Dosage: ^DF^
     Route: 042
     Dates: start: 20070718, end: 20070718
  16. LOXEN [Suspect]
     Dosage: ^DF^
     Route: 042
     Dates: start: 20070718, end: 20070718
  17. PARACETAMOL [Suspect]
     Dosage: ^DF^
     Route: 042
     Dates: start: 20070718, end: 20070718
  18. PROFENID [Suspect]
     Dosage: 100 MG ONCE
     Route: 042
     Dates: start: 20070718, end: 20070718
  19. MORPHINE [Suspect]
     Dosage: ^DF^
     Route: 042
     Dates: start: 20070718, end: 20070718
  20. OXACILLIN [Suspect]
     Dosage: ^DF^
     Route: 042
     Dates: start: 20070718, end: 20070718
  21. MOTILIUM [Suspect]
     Route: 048

REACTIONS (2)
  - CEREBRAL HAEMATOMA [None]
  - CEREBRAL HAEMORRHAGE [None]
